FAERS Safety Report 6493237-1 (Version None)
Quarter: 2009Q4

REPORT INFORMATION
  Report Type: 
  Country: None (occurrence: None)
  Receive Date: 20091209
  Receipt Date: 20091203
  Transmission Date: 20100525
  Serious: Yes (Death, Hospitalization, Other)
  Sender: FDA-Public Use
  Company Number: 2009US004284

PATIENT
  Age: 38 Year
  Sex: Female

DRUGS (2)
  1. PROGRAF [Suspect]
     Indication: PROPHYLAXIS AGAINST GRAFT VERSUS HOST DISEASE
  2. MYCOPHENOLATE MOFETIL [Suspect]
     Indication: PROPHYLAXIS AGAINST GRAFT VERSUS HOST DISEASE

REACTIONS (10)
  - ACUTE GRAFT VERSUS HOST DISEASE IN INTESTINE [None]
  - FACIAL PARESIS [None]
  - FALL [None]
  - HEMIPARESIS [None]
  - JC VIRUS INFECTION [None]
  - MICROANGIOPATHIC HAEMOLYTIC ANAEMIA [None]
  - PNEUMONIA [None]
  - PROGRESSIVE MULTIFOCAL LEUKOENCEPHALOPATHY [None]
  - SUBARACHNOID HAEMORRHAGE [None]
  - UPPER MOTOR NEURONE LESION [None]
